FAERS Safety Report 4485063-X (Version None)
Quarter: 2004Q4

REPORT INFORMATION
  Report Type: 
  Country: None (occurrence: None)
  Receive Date: 20041026
  Receipt Date: 20040826
  Transmission Date: 20050328
  Serious: No
  Sender: FDA-Public Use
  Company Number: US-BRISTOL-MYERS SQUIBB COMPANY-12684452

PATIENT
  Age: 56 Year
  Sex: Female
  Weight: 127 kg

DRUGS (2)
  1. METAGLIP [Suspect]
     Indication: DIABETES MELLITUS
     Dosage: DOSE INCREASED TO 1 DOSAGE FORMS TWICE DAILY ^LAST WEEK^.
     Route: 048
     Dates: start: 20040601
  2. LISINOPRIL [Concomitant]

REACTIONS (1)
  - ALOPECIA [None]
